FAERS Safety Report 18230172 (Version 5)
Quarter: 2025Q4

REPORT INFORMATION
  Report Type: Report from Study
  Country: US (occurrence: US)
  Receive Date: 20200904
  Receipt Date: 20251119
  Transmission Date: 20260118
  Serious: Yes (Other)
  Sender: DECIPHERA PHARMACEUTICALS
  Company Number: US-DECIPHERA PHARMACEUTICALS LLC-2020-US-000004

PATIENT
  Age: 80 Year
  Sex: Female

DRUGS (27)
  1. QINLOCK [Suspect]
     Active Substance: RIPRETINIB
     Indication: Gastrointestinal stromal tumour
     Dosage: 150 MILLIGRAM, QD
     Dates: start: 20200529
  2. QINLOCK [Suspect]
     Active Substance: RIPRETINIB
     Dosage: UNK
  3. QINLOCK [Suspect]
     Active Substance: RIPRETINIB
     Dosage: 150 MILLIGRAM, QD
  4. QINLOCK [Suspect]
     Active Substance: RIPRETINIB
     Dosage: 150 MILLIGRAM, QD
  5. QINLOCK [Suspect]
     Active Substance: RIPRETINIB
     Dosage: 150 MILLIGRAM, QD
  6. KEYTRUDA [Suspect]
     Active Substance: PEMBROLIZUMAB
     Indication: Gastrointestinal stromal tumour
     Dosage: UNK
  7. BCQ [Concomitant]
     Indication: Inflammation
  8. BCQ [Concomitant]
     Indication: Functional gastrointestinal disorder
  9. BCQ [Concomitant]
     Indication: Connective tissue disorder
  10. VITAMIN D3 K2 [Concomitant]
     Indication: Bone disorder
     Dosage: 1 CAP
  11. VITAMIN D3 K2 [Concomitant]
     Indication: Blood glucose abnormal
  12. VITAMIN D3 K2 [Concomitant]
     Indication: Neoplasm malignant
  13. VITAMIN D3 K2 [Concomitant]
     Indication: Cardiac disorder
  14. CO Q 10 [UBIDECARENONE] [Concomitant]
     Indication: Antioxidant therapy
     Dosage: 1 SOFT GEL
  15. CO Q 10 [UBIDECARENONE] [Concomitant]
     Indication: Asthenia
  16. PHYTOMAX [Concomitant]
     Indication: Blood glucose abnormal
     Dosage: 1 TAB
  17. PHYTOMAX [Concomitant]
     Indication: Cardiovascular event prophylaxis
  18. PROBIOTICS NOS [Concomitant]
     Active Substance: PROBIOTICS NOS
     Indication: Gastrointestinal disorder
     Dosage: UNK
  19. Omega Norwegian Gold [Concomitant]
     Dosage: 1 SOFT GEL
  20. MELATONIN [Concomitant]
     Active Substance: MELATONIN
     Indication: Gastrointestinal motility disorder
     Dosage: 2 CAP
  21. MELATONIN [Concomitant]
     Active Substance: MELATONIN
     Indication: Impaired healing
  22. MELATONIN [Concomitant]
     Active Substance: MELATONIN
     Indication: Blood pressure measurement
  23. MELATONIN [Concomitant]
     Active Substance: MELATONIN
     Indication: Neurodegenerative disorder
  24. MELATONIN [Concomitant]
     Active Substance: MELATONIN
     Indication: Pulse abnormal
  25. MAGNESIUM MALATE [Concomitant]
     Active Substance: MAGNESIUM MALATE
     Indication: Constipation
     Dosage: 1250 MILLIGRAM, 2 CAP
  26. MAGNESIUM MALATE [Concomitant]
     Active Substance: MAGNESIUM MALATE
     Indication: Insomnia
  27. MAGNESIUM MALATE [Concomitant]
     Active Substance: MAGNESIUM MALATE
     Indication: Oral bacterial infection

REACTIONS (19)
  - Squamous cell carcinoma of skin [Unknown]
  - Erythema [Unknown]
  - Ear pruritus [Not Recovered/Not Resolved]
  - Skin irritation [Unknown]
  - Rash [Not Recovered/Not Resolved]
  - Hair texture abnormal [Unknown]
  - Neoplasm progression [Unknown]
  - Choking sensation [Unknown]
  - Stress [Unknown]
  - Abdominal distension [Unknown]
  - Flatulence [Unknown]
  - Dry skin [Unknown]
  - Alopecia [Recovering/Resolving]
  - Constipation [Unknown]
  - Pruritus [Unknown]
  - Myalgia [Unknown]
  - Muscle spasms [Unknown]
  - Diarrhoea [Unknown]
  - Product coating issue [Unknown]

NARRATIVE: CASE EVENT DATE: 20200602
